FAERS Safety Report 5375861-2 (Version None)
Quarter: 2007Q3

REPORT INFORMATION
  Report Type: 
  Country: None (occurrence: None)
  Receive Date: 20070702
  Receipt Date: 20070625
  Transmission Date: 20080115
  Serious: Yes (Other)
  Sender: FDA-Public Use
  Company Number: PHEH2007US03853

PATIENT
  Age: 54 Year
  Sex: Female
  Weight: 56.689 kg

DRUGS (15)
  1. ZELNORM [Suspect]
     Dosage: UNK, UNK
     Dates: start: 20030101, end: 20070401
  2. METHOTREXATE [Concomitant]
     Indication: RHEUMATOID ARTHRITIS
     Dosage: 7.5 MG, UNK
  3. POTASSIUM ACETATE [Concomitant]
  4. FOLIC ACID [Concomitant]
     Dosage: 1 MG, QD
  5. SIMVASTATIN [Concomitant]
     Indication: HYPERCHOLESTEROLAEMIA
     Dosage: 40 MG, QD
  6. CLONAZEPAM [Concomitant]
     Indication: ANXIETY
  7. ACIPHEX [Concomitant]
     Indication: GASTROOESOPHAGEAL REFLUX DISEASE
     Dosage: 20 MG, QD
  8. EVOXAC [Concomitant]
     Dosage: 30 MG, BID
  9. CYCLOBENZAPRINE HCL [Concomitant]
     Dosage: 10 MG, TID
  10. ACTIQ [Concomitant]
     Dosage: 1200 MG, TID
  11. SENOKOT                                 /UNK/ [Concomitant]
  12. GLYCOLAX [Concomitant]
     Dosage: UNK, QD
  13. MIACALCIN [Concomitant]
     Dosage: UNK, QD
  14. PHENERGAN HCL [Concomitant]
     Dosage: 50 MG, PRN
  15. STOOL SOFTENER [Concomitant]

REACTIONS (12)
  - ASTHENIA [None]
  - ELECTROCARDIOGRAM T WAVE ABNORMAL [None]
  - HEART RATE INCREASED [None]
  - HYPERLIPIDAEMIA [None]
  - MITRAL VALVE PROLAPSE [None]
  - OSTEOARTHRITIS [None]
  - PAIN [None]
  - PALPITATIONS [None]
  - PULMONARY OEDEMA [None]
  - SINUS TACHYCARDIA [None]
  - TRICUSPID VALVE PROLAPSE [None]
  - TYPE 2 DIABETES MELLITUS [None]
